FAERS Safety Report 10969807 (Version 2)
Quarter: 2015Q2

REPORT INFORMATION
  Report Type: Spontaneous
  Country: FR (occurrence: None)
  Receive Date: 20150327
  Receipt Date: 20150521
  Transmission Date: 20150821
  Serious: Yes (Other)
  Sender: FDA-Public Use
  Company Number: 2014TASFR000514

PATIENT
  Age: 68 Year
  Sex: Male
  Weight: 73 kg

DRUGS (10)
  1. TASIMELTEON [Suspect]
     Active Substance: TASIMELTEON
     Indication: CIRCADIAN RHYTHM SLEEP DISORDER
     Route: 048
     Dates: start: 20120131, end: 20140607
  2. PRAVASTATIN [Suspect]
     Active Substance: PRAVASTATIN\PRAVASTATIN SODIUM
     Indication: BLOOD CHOLESTEROL ABNORMAL
     Route: 048
     Dates: start: 20090601, end: 20140903
  3. METFORMIN [Concomitant]
     Active Substance: METFORMIN HYDROCHLORIDE
  4. NOVONORM (REPAGLINIDE) [Concomitant]
  5. DESLORATADINE. [Suspect]
     Active Substance: DESLORATADINE
     Indication: ALLERGIC COUGH
     Route: 048
     Dates: start: 20140819, end: 20140826
  6. LANTUS [Concomitant]
     Active Substance: INSULIN GLARGINE
  7. KARDEGIC [Concomitant]
     Active Substance: ASPIRIN LYSINE
  8. TAREG (VALSARTAN) [Concomitant]
  9. DIAMICRON (GLICLAZIDE) [Concomitant]
     Active Substance: GLICLAZIDE
  10. PARACETAMOL [Concomitant]
     Active Substance: ACETAMINOPHEN

REACTIONS (7)
  - Blood lactate dehydrogenase increased [None]
  - Drug-induced liver injury [None]
  - Gamma-glutamyltransferase increased [None]
  - Alanine aminotransferase increased [None]
  - Aspartate aminotransferase increased [None]
  - Blood alkaline phosphatase increased [None]
  - Hepatotoxicity [None]

NARRATIVE: CASE EVENT DATE: 20140909
